FAERS Safety Report 21297273 (Version 1)
Quarter: 2022Q3

REPORT INFORMATION
  Report Type: Spontaneous
  Country: US (occurrence: None)
  Receive Date: 20220902
  Receipt Date: 20220902
  Transmission Date: 20221027
  Serious: Yes (Hospitalization)
  Sender: FDA-Public Use
  Company Number: None

PATIENT
  Age: 60 Year
  Sex: Male

DRUGS (3)
  1. APIXABAN [Suspect]
     Active Substance: APIXABAN
     Indication: Deep vein thrombosis
     Dosage: BID
     Dates: start: 20220414, end: 20220810
  2. APIXABAN [Suspect]
     Active Substance: APIXABAN
     Indication: Coronary artery disease
     Dates: start: 20170418
  3. APIXABAN [Suspect]
     Active Substance: APIXABAN

REACTIONS (7)
  - Asthenia [None]
  - Hypotension [None]
  - Rectal haemorrhage [None]
  - Haemorrhage urinary tract [None]
  - Anaemia [None]
  - Gastric haemorrhage [None]
  - Haematuria [None]

NARRATIVE: CASE EVENT DATE: 20220810
